FAERS Safety Report 24404656 (Version 1)
Quarter: 2024Q4

REPORT INFORMATION
  Report Type: Report from Study
  Country: US (occurrence: US)
  Receive Date: 20241007
  Receipt Date: 20241007
  Transmission Date: 20250115
  Serious: No
  Sender: ROCHE
  Company Number: US-ROCHE-3519546

PATIENT
  Age: 74 Year
  Sex: Female

DRUGS (1)
  1. GAZYVA [Suspect]
     Active Substance: OBINUTUZUMAB
     Indication: B-cell lymphoma stage III
     Dosage: DISCONTINUED TREATMENT IN /JAN/2024?STRENGTH: 1000 MG
     Route: 065

REACTIONS (1)
  - Illness [Unknown]
